FAERS Safety Report 6094223-6 (Version None)
Quarter: 2009Q1

REPORT INFORMATION
  Report Type: 
  Country: None (occurrence: None)
  Receive Date: 20090226
  Receipt Date: 20090217
  Transmission Date: 20090719
  Serious: Yes (Other)
  Sender: FDA-Public Use
  Company Number: PHHY2009AT05652

PATIENT
  Age: 42 Year
  Sex: Female

DRUGS (3)
  1. VOLTAREN [Suspect]
     Indication: SCIATICA
     Dosage: 50 MG DAILY
     Dates: start: 20090121, end: 20090124
  2. DEFLAMAT [Concomitant]
     Indication: SCIATICA
     Dosage: 150 MG DAILY
     Dates: start: 20090121, end: 20090125
  3. NOVALGIN [Concomitant]
     Indication: SCIATICA
     Dosage: UNK
     Dates: start: 20090121, end: 20090126

REACTIONS (2)
  - DERMATITIS BULLOUS [None]
  - PALMAR ERYTHEMA [None]
